FAERS Safety Report 17512101 (Version 1)
Quarter: 2020Q1

REPORT INFORMATION
  Report Type: Spontaneous
  Country: JP (occurrence: JP)
  Receive Date: 20200308
  Receipt Date: 20200308
  Transmission Date: 20200409
  Serious: Yes (Other)
  Sender: FDA-Public Use
  Company Number: JP-CELLTRION INC.-2019JP027495

PATIENT

DRUGS (3)
  1. DOCETAXEL. [Concomitant]
     Active Substance: DOCETAXEL
     Indication: BREAST CANCER
     Dosage: 110 MG
     Route: 041
     Dates: start: 20191129, end: 20191129
  2. TRASTUZUMAB BS FOR I.V. INFUSION ?CTH? [Suspect]
     Active Substance: TRASTUZUMAB
     Indication: BREAST CANCER
     Dosage: 400 MG
     Route: 041
     Dates: start: 20191129, end: 20191129
  3. PERTUZUMAB. [Concomitant]
     Active Substance: PERTUZUMAB
     Indication: BREAST CANCER
     Dosage: 840 MG
     Route: 041
     Dates: start: 20191129, end: 20191129

REACTIONS (2)
  - Melaena [Unknown]
  - Infusion related reaction [Recovered/Resolved]

NARRATIVE: CASE EVENT DATE: 20191129
